FAERS Safety Report 10652309 (Version 5)
Quarter: 2015Q2

REPORT INFORMATION
  Report Type: Spontaneous
  Country: US (occurrence: None)
  Receive Date: 20141211
  Receipt Date: 20150504
  Transmission Date: 20150821
  Serious: Yes (Life-Threatening, Hospitalization, Other)
  Sender: FDA-Public Use
  Company Number: ADR-2014-02304

PATIENT
  Age: 64 Year
  Sex: Female

DRUGS (21)
  1. BACLOFEN INTRATHECAL [Suspect]
     Active Substance: BACLOFEN
     Indication: SPINAL PAIN
     Dosage: 36 MCG/DAY
  2. SUFENTANIL [Suspect]
     Active Substance: SUFENTANIL
     Dosage: 10.660 MCG/DAY??
  3. ACETYLSALICYLIC ACID [Suspect]
     Active Substance: ASPIRIN
  4. NITROGLYCERIN. [Suspect]
     Active Substance: NITROGLYCERIN
  5. ADAVAN [Suspect]
     Active Substance: UNSPECIFIED INGREDIENT
     Route: 048
  6. CYCLOBENZAPRINE HYDROCHLORIDE. [Suspect]
     Active Substance: CYCLOBENZAPRINE HYDROCHLORIDE
  7. SPIRONOLACTONE. [Suspect]
     Active Substance: SPIRONOLACTONE
  8. TRAMADOL [Suspect]
     Active Substance: TRAMADOL
     Route: 048
  9. VALIUM [Suspect]
     Active Substance: DIAZEPAM
     Route: 048
  10. LORAZEPAM. [Suspect]
     Active Substance: LORAZEPAM
  11. ZOLPIDEM [Suspect]
     Active Substance: ZOLPIDEM\ZOLPIDEM TARTRATE
  12. PRIALT [Suspect]
     Active Substance: ZICONOTIDE ACETATE
     Indication: SPINAL PAIN
     Dosage: 3 MCG/DAY?
  13. HYDROXYZINE HYDROCHLORIDE. [Suspect]
     Active Substance: HYDROXYZINE HYDROCHLORIDE
  14. DICYCLOMINE [Suspect]
     Active Substance: DICYCLOMINE HYDROCHLORIDE
  15. POTASSIUM CHLORIDE. [Suspect]
     Active Substance: POTASSIUM CHLORIDE
  16. VYTORIN [Suspect]
     Active Substance: EZETIMIBE\SIMVASTATIN
  17. DILAUDID [Suspect]
     Active Substance: HYDROMORPHONE HYDROCHLORIDE
     Route: 042
  18. BUPIVACAINE INTRATHECAL [Suspect]
     Active Substance: BUPIVACAINE
     Dosage: CONCENTRATION: #6#, DOSE RATE: 1.8 MG/DAY
     Dates: start: 20131230
  19. FENTANYL (INTRATHECAL) 700 MCG/ML [Suspect]
     Active Substance: FENTANYL
     Route: 037
  20. LASIX [Suspect]
     Active Substance: FUROSEMIDE
  21. ZOFRAN [Suspect]
     Active Substance: ONDANSETRON HYDROCHLORIDE

REACTIONS (24)
  - Tongue ulceration [None]
  - Pelvic pain [None]
  - Inflammation [None]
  - Device kink [None]
  - No therapeutic response [None]
  - Nausea [None]
  - Swelling [None]
  - Abdominal pain [None]
  - Sciatica [None]
  - Seizure [None]
  - Pain [None]
  - Implant site swelling [None]
  - Muscle spasms [None]
  - Muscle spasticity [None]
  - Dysgeusia [None]
  - Condition aggravated [None]
  - Coma [None]
  - Unevaluable event [None]
  - Malaise [None]
  - Groin pain [None]
  - Feeling abnormal [None]
  - Therapeutic response decreased [None]
  - Tongue coated [None]
  - Tongue blistering [None]
